FAERS Safety Report 12132387 (Version 1)
Quarter: 2016Q1

REPORT INFORMATION
  Report Type: Spontaneous
  Country: CN (occurrence: CN)
  Receive Date: 20160301
  Receipt Date: 20160301
  Transmission Date: 20160526
  Serious: Yes (Other)
  Sender: FDA-Public Use
  Company Number: CN-ELI_LILLY_AND_COMPANY-CN201602007845

PATIENT
  Sex: Male
  Weight: 65 kg

DRUGS (2)
  1. OXCARBAZEPINE. [Suspect]
     Active Substance: OXCARBAZEPINE
     Indication: STATUS EPILEPTICUS
     Dosage: 0.6 G, QD
     Route: 048
  2. FLUOXETINE HYDROCHLORIDE. [Suspect]
     Active Substance: FLUOXETINE HYDROCHLORIDE
     Indication: EMOTIONAL DISTRESS
     Dosage: 20 MG, QD
     Route: 048
     Dates: start: 20150525, end: 20150628

REACTIONS (1)
  - Condition aggravated [Recovering/Resolving]
